FAERS Safety Report 7505170 (Version 2)
Quarter: 2020Q3

REPORT INFORMATION
  Report Type: Spontaneous
  Country: DE (occurrence: DE)
  Receive Date: 20100728
  Receipt Date: 20200719
  Transmission Date: 20201103
  Serious: Yes (Life-Threatening, Hospitalization)
  Sender: FDA-Public Use
  Company Number: GXKR2010DE07941

PATIENT
  Age: 27 Year
  Sex: Female
  Weight: 78 kg

DRUGS (15)
  1. LACOSAMIDE. [Suspect]
     Active Substance: LACOSAMIDE
     Dosage: 12 G, SINGLE
     Route: 048
     Dates: start: 200604
  2. ZONISAMIDE. [Suspect]
     Active Substance: ZONISAMIDE
     Indication: SUICIDE ATTEMPT
     Dosage: 2.8 G, ONCE/SINGLE
     Route: 048
     Dates: start: 200604
  3. MIDAZOLAM. [Concomitant]
     Active Substance: MIDAZOLAM
     Indication: PRODUCT USED FOR UNKNOWN INDICATION
     Dosage: UNK
     Route: 065
  4. DIAZEPAM. [Concomitant]
     Active Substance: DIAZEPAM
     Indication: PRODUCT USED FOR UNKNOWN INDICATION
     Dosage: UNK
     Route: 065
  5. NOREPINEPHRINE. [Concomitant]
     Active Substance: NOREPINEPHRINE
     Indication: PRODUCT USED FOR UNKNOWN INDICATION
     Dosage: UNK
     Route: 065
  6. METRONIDAZOLE. [Concomitant]
     Active Substance: METRONIDAZOLE
     Indication: PRODUCT USED FOR UNKNOWN INDICATION
     Dosage: UNK
     Route: 065
  7. TOPIRAMATE. [Suspect]
     Active Substance: TOPIRAMATE
     Indication: SUICIDE ATTEMPT
     Dosage: 2 G, ONCE/SINGLE
     Route: 048
     Dates: start: 200604
  8. CARBON [Concomitant]
     Active Substance: ACTIVATED CHARCOAL
     Indication: DETOXIFICATION
     Dosage: UNK
     Route: 048
  9. LACOSAMIDE. [Suspect]
     Active Substance: LACOSAMIDE
     Indication: SEIZURE
     Dosage: IN REGULATORY TRIAL (SP755)
     Route: 065
     Dates: start: 2005
  10. SODIUM SULFATE [Concomitant]
     Active Substance: SODIUM SULFATE
     Indication: PRODUCT USED FOR UNKNOWN INDICATION
     Dosage: UNK
     Route: 065
  11. CEFOTAXIME [Concomitant]
     Active Substance: CEFOTAXIME SODIUM
     Indication: PRODUCT USED FOR UNKNOWN INDICATION
     Dosage: UNK
     Route: 065
  12. GABAPENTIN. [Suspect]
     Active Substance: GABAPENTIN
     Indication: SUICIDE ATTEMPT
     Dosage: 56 G, ONCE/SINGLE
     Route: 048
     Dates: start: 200604
  13. LACOSAMIDE. [Suspect]
     Active Substance: LACOSAMIDE
     Indication: SUICIDE ATTEMPT
     Dosage: REGULATORY TRIAL (SP757)
     Route: 042
  14. RINGERS SOLUTION [Concomitant]
     Active Substance: CALCIUM CHLORIDE\POTASSIUM CHLORIDE\SODIUM CHLORIDE
     Indication: PRODUCT USED FOR UNKNOWN INDICATION
     Dosage: 2.5 L, UNK
     Route: 042
  15. LACOSAMIDE. [Suspect]
     Active Substance: LACOSAMIDE
     Dosage: IN BOTH THE EXTENSION STUDY AND THE INTRAVENOUS STUDY
     Route: 065

REACTIONS (12)
  - Acidosis [Unknown]
  - Vomiting [Recovered/Resolved]
  - Coma [Recovered/Resolved]
  - Generalised tonic-clonic seizure [Recovered/Resolved]
  - Intentional overdose [Recovered/Resolved]
  - Blood pressure decreased [Recovered/Resolved]
  - Pneumonia aspiration [Recovered/Resolved]
  - Encephalopathy [Recovered/Resolved]
  - Toxicity to various agents [Recovered/Resolved]
  - Electrocardiogram PR prolongation [Recovered/Resolved]
  - Hypotension [Recovered/Resolved]
  - Pneumonia [Recovered/Resolved]

NARRATIVE: CASE EVENT DATE: 200604
